FAERS Safety Report 12755593 (Version 1)
Quarter: 2016Q3

REPORT INFORMATION
  Report Type: Report from Study
  Country: US (occurrence: US)
  Receive Date: 20160916
  Receipt Date: 20160916
  Transmission Date: 20161109
  Serious: Yes (Hospitalization, Other)
  Sender: FDA-Public Use
  Company Number: US-ROCHE-796198

PATIENT
  Age: 61 Year
  Sex: Female
  Weight: 61 kg

DRUGS (3)
  1. BEVACIZUMAB [Suspect]
     Active Substance: BEVACIZUMAB
     Indication: CARCINOID TUMOUR
     Route: 042
     Dates: start: 20100430, end: 20121109
  2. TEMSIROLIMUS [Suspect]
     Active Substance: TEMSIROLIMUS
     Indication: CARCINOID TUMOUR
     Route: 042
  3. TEMSIROLIMUS [Suspect]
     Active Substance: TEMSIROLIMUS
     Dosage: REDUCED DOSE
     Route: 042
     Dates: start: 20100618, end: 20121109

REACTIONS (13)
  - Hypertension [Unknown]
  - Acute kidney injury [Recovered/Resolved with Sequelae]
  - Acute kidney injury [Unknown]
  - Haematochezia [Unknown]
  - Dehydration [Unknown]
  - Clostridium difficile infection [Recovered/Resolved with Sequelae]
  - Wound dehiscence [Unknown]
  - Haematuria [Unknown]
  - Small intestinal obstruction [Recovered/Resolved with Sequelae]
  - Stoma site ulcer [Unknown]
  - Small intestinal obstruction [Unknown]
  - Anaemia [Unknown]
  - Hypophosphataemia [Unknown]

NARRATIVE: CASE EVENT DATE: 20110711
